FAERS Safety Report 8941197 (Version 3)
Quarter: 2013Q2

REPORT INFORMATION
  Report Type: Spontaneous
  Country: JP (occurrence: JP)
  Receive Date: 20121203
  Receipt Date: 20130524
  Transmission Date: 20140414
  Serious: Yes (Other)
  Sender: FDA-Public Use
  Company Number: JP-JNJFOC-20121114982

PATIENT
  Age: 73 Year
  Sex: Male

DRUGS (4)
  1. FINIBAX [Suspect]
     Indication: PNEUMONIA BACTERIAL
     Dosage: DR, 0.5 G THREE TIMES DAILY
     Route: 041
     Dates: start: 20121112, end: 20121115
  2. BFLUID [Concomitant]
     Route: 065
  3. VESICARE [Concomitant]
     Indication: HYPERTONIC BLADDER
     Route: 048
  4. HARNAL D [Concomitant]
     Indication: BENIGN PROSTATIC HYPERPLASIA
     Route: 048

REACTIONS (1)
  - Pancytopenia [Recovering/Resolving]
